FAERS Safety Report 14168325 (Version 3)
Quarter: 2018Q2

REPORT INFORMATION
  Report Type: Report from Study
  Country: KR (occurrence: KR)
  Receive Date: 20171108
  Receipt Date: 20180409
  Transmission Date: 20180711
  Serious: Yes (Hospitalization, Other)
  Sender: FDA-Public Use
  Company Number: KR-ROCHE-1990051

PATIENT
  Age: 53 Year
  Sex: Female
  Weight: 57.1 kg

DRUGS (16)
  1. TRASTUZUMAB. [Suspect]
     Active Substance: TRASTUZUMAB
     Indication: BREAST CANCER
     Route: 042
     Dates: start: 20170804, end: 20171123
  2. SYNTHROID [Concomitant]
     Active Substance: LEVOTHYROXINE SODIUM
     Route: 048
     Dates: start: 20170804
  3. NEOPLATIN (SOUTH KOREA) [Concomitant]
     Route: 042
     Dates: start: 20170916, end: 20170916
  4. PERTUZUMAB. [Suspect]
     Active Substance: PERTUZUMAB
     Indication: BREAST CANCER
     Route: 042
     Dates: start: 20170804, end: 20171123
  5. NEOPLATIN (SOUTH KOREA) [Concomitant]
     Route: 042
     Dates: start: 20170826, end: 20170826
  6. SUSPEN ER [Concomitant]
     Route: 047
     Dates: start: 20170805
  7. NASERON [Concomitant]
     Route: 048
     Dates: start: 20170805
  8. PENIRAMIN [Concomitant]
     Route: 042
     Dates: start: 20170804
  9. NEOPLATIN (SOUTH KOREA) [Concomitant]
     Route: 042
     Dates: start: 20171101, end: 20171101
  10. DOCETAXEL. [Suspect]
     Active Substance: DOCETAXEL
     Indication: BREAST CANCER
     Route: 042
     Dates: start: 20170804, end: 20171124
  11. NEOPLATIN (SOUTH KOREA) [Concomitant]
     Route: 042
     Dates: start: 20171126, end: 20171126
  12. KYTRIL [Concomitant]
     Active Substance: GRANISETRON HYDROCHLORIDE
     Route: 048
     Dates: start: 20170805
  13. NEOPLATIN (SOUTH KOREA) [Concomitant]
     Indication: BREAST CANCER
     Route: 042
     Dates: start: 20170805, end: 20170805
  14. NEOPLATIN (SOUTH KOREA) [Concomitant]
     Route: 042
     Dates: start: 20171011, end: 20171011
  15. DEXAMETHASONE. [Concomitant]
     Active Substance: DEXAMETHASONE
     Route: 042
     Dates: start: 20170804
  16. CURAN [Concomitant]
     Active Substance: RANITIDINE HYDROCHLORIDE
     Route: 048
     Dates: start: 20170805

REACTIONS (6)
  - Alanine aminotransferase increased [Recovered/Resolved]
  - Cough [Recovering/Resolving]
  - Neutropenia [Recovered/Resolved]
  - Aspartate aminotransferase increased [Recovered/Resolved]
  - Aspartate aminotransferase increased [Recovered/Resolved]
  - Anaemia [Recovering/Resolving]

NARRATIVE: CASE EVENT DATE: 20170814
